FAERS Safety Report 9549645 (Version 1)
Quarter: 2013Q3

REPORT INFORMATION
  Report Type: Spontaneous
  Country: JP (occurrence: JP)
  Receive Date: 20130924
  Receipt Date: 20130924
  Transmission Date: 20140515
  Serious: Yes (Other)
  Sender: FDA-Public Use
  Company Number: JP-ELI_LILLY_AND_COMPANY-JP201309003334

PATIENT
  Sex: 0

DRUGS (2)
  1. GEMCITABINE HYDROCHLORIDE [Suspect]
     Indication: BILE DUCT CANCER
     Dosage: 1000 MG/M2, UNK
     Route: 042
  2. TS 1 [Concomitant]
     Indication: BILE DUCT CANCER
     Dosage: 30 MG/M2, UNK
     Route: 048

REACTIONS (1)
  - Hyponatraemia [Unknown]
